FAERS Safety Report 9292439 (Version 3)
Quarter: 2013Q3

REPORT INFORMATION
  Report Type: Spontaneous
  Country: US (occurrence: US)
  Receive Date: 20130516
  Receipt Date: 20130725
  Transmission Date: 20140515
  Serious: Yes (Other)
  Sender: FDA-Public Use
  Company Number: US-PFIZER INC-2013149510

PATIENT
  Sex: 0

DRUGS (3)
  1. LYRICA [Suspect]
     Dosage: UNK
  2. LIPITOR [Suspect]
     Dosage: UNK
  3. CHANTIX [Suspect]
     Dosage: UNK

REACTIONS (3)
  - Peripheral vascular disorder [Unknown]
  - Post procedural complication [Unknown]
  - Activities of daily living impaired [Unknown]
